FAERS Safety Report 5491903-8 (Version None)
Quarter: 2007Q4

REPORT INFORMATION
  Report Type: 
  Country: None (occurrence: None)
  Receive Date: 20071019
  Receipt Date: 20071019
  Transmission Date: 20080405
  Serious: Yes (Life-Threatening, Hospitalization, Other)
  Sender: FDA-Public Use
  Company Number: None

PATIENT
  Sex: Female
  Weight: 58.9676 kg

DRUGS (9)
  1. FLURBIPROFEN [Suspect]
     Indication: ARTHRITIS
     Dosage: 100 MG TWICE A DAY PO
     Route: 048
     Dates: start: 20070917, end: 20070927
  2. FLURBIPROFEN [Suspect]
     Indication: BACK PAIN
     Dosage: 100 MG TWICE A DAY PO
     Route: 048
     Dates: start: 20070917, end: 20070927
  3. FLURBIPROFEN [Suspect]
     Indication: INTERVERTEBRAL DISC DISORDER
     Dosage: 100 MG TWICE A DAY PO
     Route: 048
     Dates: start: 20070917, end: 20070927
  4. FLURBIPROFEN [Suspect]
     Indication: PAIN
     Dosage: 100 MG TWICE A DAY PO
     Route: 048
     Dates: start: 20070917, end: 20070927
  5. FLURBIPROFEN [Suspect]
     Indication: SWELLING
     Dosage: 100 MG TWICE A DAY PO
     Route: 048
     Dates: start: 20070917, end: 20070927
  6. LOVASTATIN [Concomitant]
  7. TRIAMTERENE [Concomitant]
  8. TYLENOL W/ CODEINE NO. 3 [Concomitant]
  9. SOMA COMPOUND [Concomitant]

REACTIONS (6)
  - DYSPNOEA [None]
  - HYPERTENSION [None]
  - PHARMACEUTICAL PRODUCT COMPLAINT [None]
  - RESPIRATORY ARREST [None]
  - SNORING [None]
  - URTICARIA [None]
